FAERS Safety Report 5004725-9 (Version None)
Quarter: 2006Q1

REPORT INFORMATION
  Report Type: 
  Country: None (occurrence: None)
  Receive Date: 20060321
  Receipt Date: 20060212
  Transmission Date: 20060701
  Serious: No
  Sender: FDA-Public Use
  Company Number: 2006US000241

PATIENT
  Age: 85 Year
  Sex: Female

DRUGS (3)
  1. VESICARE [Suspect]
     Indication: HYPERTONIC BLADDER
     Dosage: 0.5 MG, UID/QD, ORAL
     Route: 048
     Dates: start: 20050901, end: 20060206
  2. LIPITOR [Concomitant]
  3. EVISTA [Concomitant]

REACTIONS (5)
  - DRUG INEFFECTIVE [None]
  - DRY MOUTH [None]
  - NASAL DRYNESS [None]
  - RHINORRHOEA [None]
  - VISION BLURRED [None]
